FAERS Safety Report 12115502 (Version 5)
Quarter: 2016Q3

REPORT INFORMATION
  Report Type: Report from Study
  Country: CA (occurrence: CA)
  Receive Date: 20160225
  Receipt Date: 20160725
  Transmission Date: 20161109
  Serious: Yes (Death, Hospitalization)
  Sender: FDA-Public Use
  Company Number: CA-INCYTE CORPORATION-2015IN003549

PATIENT
  Age: 78 Year
  Sex: Male

DRUGS (7)
  1. JAKAFI [Suspect]
     Active Substance: RUXOLITINIB
     Indication: MYELOFIBROSIS
     Dosage: 5 MG, BID
     Route: 048
     Dates: start: 20150613
  2. EPREX [Concomitant]
     Active Substance: ERYTHROPOIETIN
     Indication: PRODUCT USED FOR UNKNOWN INDICATION
     Dosage: 40 U, UNK
     Route: 065
  3. EPREX [Concomitant]
     Active Substance: ERYTHROPOIETIN
     Dosage: 60 U, UNK
     Route: 065
  4. MORPHINE (NGX) [Suspect]
     Active Substance: MORPHINE
     Indication: ARTHRALGIA
  5. MORPHINE (NGX) [Suspect]
     Active Substance: MORPHINE
     Indication: BACK PAIN
     Dosage: UNK UNK, Q4H
     Route: 065
  6. MORPHINE (NGX) [Suspect]
     Active Substance: MORPHINE
     Indication: ABDOMINAL PAIN UPPER
  7. MORPHINE (NGX) [Suspect]
     Active Substance: MORPHINE
     Indication: PAIN IN EXTREMITY

REACTIONS (24)
  - Skin discolouration [Unknown]
  - Dehydration [Unknown]
  - Abdominal pain upper [Not Recovered/Not Resolved]
  - Decreased appetite [Unknown]
  - Anaemia [Unknown]
  - Death [Fatal]
  - Back pain [Unknown]
  - Eating disorder [Recovering/Resolving]
  - Weight increased [Unknown]
  - Night sweats [Not Recovered/Not Resolved]
  - Arthralgia [Unknown]
  - Weight decreased [Unknown]
  - Splenomegaly [Unknown]
  - Loss of consciousness [Unknown]
  - Vomiting [Unknown]
  - Joint swelling [Unknown]
  - Asthenia [Unknown]
  - Dizziness [Unknown]
  - Pain in extremity [Unknown]
  - Drug ineffective [Unknown]
  - Muscle spasms [Unknown]
  - Abdominal pain [Not Recovered/Not Resolved]
  - Concomitant disease aggravated [Unknown]
  - Pain [Unknown]

NARRATIVE: CASE EVENT DATE: 20160716
